FAERS Safety Report 9486482 (Version 1)
Quarter: 2013Q3

REPORT INFORMATION
  Report Type: Spontaneous
  Country: US (occurrence: None)
  Receive Date: 20130827
  Receipt Date: 20130827
  Transmission Date: 20140515
  Serious: Yes (Other)
  Sender: FDA-Public Use
  Company Number: None

PATIENT
  Age: 48 Year
  Sex: Female

DRUGS (1)
  1. FLUORIDE [Suspect]
     Indication: DENTAL CARE
     Dates: start: 20130819

REACTIONS (8)
  - Oral discomfort [None]
  - Paraesthesia [None]
  - Somnolence [None]
  - Movement disorder [None]
  - Pain in extremity [None]
  - Feeling hot [None]
  - Fatigue [None]
  - Stomatitis [None]
